FAERS Safety Report 16817834 (Version 3)
Quarter: 2019Q4

REPORT INFORMATION
  Report Type: Report from Study
  Country: US (occurrence: US)
  Receive Date: 20190917
  Receipt Date: 20191105
  Transmission Date: 20200122
  Serious: Yes (Hospitalization, Other)
  Sender: FDA-Public Use
  Company Number: US-JNJFOC-20190836267

PATIENT
  Age: 78 Year
  Sex: Female

DRUGS (6)
  1. IMBRUVICA [Suspect]
     Active Substance: IBRUTINIB
     Indication: CHRONIC LYMPHOCYTIC LEUKAEMIA
     Dosage: 420 MG, QD
     Route: 048
     Dates: start: 20190405, end: 2019
  2. VITAMIN D3 [Concomitant]
     Active Substance: CHOLECALCIFEROL
  3. TYLENOL [Concomitant]
     Active Substance: ACETAMINOPHEN
  4. CALCIUM                            /00060701/ [Concomitant]
     Active Substance: CALCIUM
  5. TUMS                               /00193601/ [Concomitant]
     Active Substance: CALCIUM CARBONATE\MAGNESIUM CARBONATE\MAGNESIUM TRISILICATE
  6. ADVIL [Concomitant]
     Active Substance: IBUPROFEN

REACTIONS (8)
  - Nodule [Not Recovered/Not Resolved]
  - Pruritus [Unknown]
  - Rib fracture [Unknown]
  - Contusion [Unknown]
  - Cardiac failure [Unknown]
  - Blood pressure increased [Unknown]
  - Spinal fracture [Unknown]
  - Accident [Unknown]

NARRATIVE: CASE EVENT DATE: 2019
